FAERS Safety Report 7561910-X (Version None)
Quarter: 2011Q2

REPORT INFORMATION
  Report Type: 
  Country: None (occurrence: None)
  Receive Date: 20110621
  Receipt Date: 20110616
  Transmission Date: 20111010
  Serious: Yes (Death, Hospitalization)
  Sender: FDA-Public Use
  Company Number: PHHY2011IN53644

PATIENT
  Age: 12 Year
  Sex: Female
  Weight: 20 kg

DRUGS (1)
  1. ASUNRA [Suspect]
     Indication: IRON OVERLOAD
     Dosage: 400 MG
     Route: 048
     Dates: start: 20090101

REACTIONS (3)
  - DEATH [None]
  - PARALYSIS [None]
  - CARDIAC DISORDER [None]
